FAERS Safety Report 9031877 (Version 2)
Quarter: 2013Q1

REPORT INFORMATION
  Report Type: Spontaneous
  Country: BR (occurrence: BR)
  Receive Date: 20130125
  Receipt Date: 20130226
  Transmission Date: 20140127
  Serious: Yes (Death, Life-Threatening, Hospitalization, Other)
  Sender: FDA-Public Use
  Company Number: PHHY2013BR006913

PATIENT
  Age: 74 Year
  Sex: Male

DRUGS (12)
  1. EXELON [Suspect]
     Indication: DEMENTIA ALZHEIMER^S TYPE
     Dosage: 1 DF, AT NIGHT
     Route: 048
     Dates: start: 2004, end: 201301
  2. EXELON [Suspect]
     Indication: DEMENTIA ALZHEIMER^S TYPE
     Dosage: 1 ML, IN THE MORNING
     Dates: start: 2007, end: 201207
  3. EXELON [Suspect]
     Dosage: 2 ML, IN THE MORNING
  4. EXELON [Suspect]
     Dosage: 6 ML, IN THE MORNING
  5. EXELON [Suspect]
     Dosage: 6.5 ML, IN THE MORNING
     Dates: end: 201207
  6. EXELON PATCH [Suspect]
     Indication: DEMENTIA ALZHEIMER^S TYPE
     Dosage: 4.6 MG, DAILY
     Route: 062
     Dates: start: 201208, end: 201301
  7. FLUOXETINE [Concomitant]
     Indication: AFFECTIVE DISORDER
     Dosage: 1 DF, DAILY
     Route: 048
     Dates: start: 2004
  8. MANTIDAN [Concomitant]
     Indication: MOTOR DYSFUNCTION
     Dosage: 2 DF, DAILY
     Route: 048
  9. TORLOS [Concomitant]
     Indication: HYPERTENSION
     Dosage: 1 DF, DAILY
     Route: 048
     Dates: start: 2009
  10. ICTUS [Concomitant]
     Indication: CARDIOVASCULAR EVENT PROPHYLAXIS
     Dosage: 1 DF, DAILY
     Route: 048
     Dates: start: 2009
  11. ALDACTONE [Concomitant]
     Indication: HYPERTENSION
     Dosage: 1 DF, DAILY
     Route: 048
  12. ALDACTONE [Concomitant]
     Dosage: 1 DF, QOD
     Route: 048

REACTIONS (11)
  - Cerebrovascular accident [Fatal]
  - Bronchopneumonia [Fatal]
  - Multi-organ failure [Fatal]
  - Gait disturbance [Fatal]
  - Facial asymmetry [Fatal]
  - Coma [Fatal]
  - Ischaemia [Fatal]
  - Dysphagia [Fatal]
  - Urinary retention [Unknown]
  - Urinary tract infection [Not Recovered/Not Resolved]
  - Discomfort [Recovering/Resolving]
